FAERS Safety Report 14220192 (Version 2)
Quarter: 2018Q1

REPORT INFORMATION
  Report Type: Spontaneous
  Country: US (occurrence: US)
  Receive Date: 20171123
  Receipt Date: 20180119
  Transmission Date: 20180508
  Serious: Yes (Hospitalization)
  Sender: FDA-Public Use
  Company Number: US-JNJFOC-20171004165

PATIENT
  Age: 13 Year
  Sex: Male

DRUGS (1)
  1. RISPERIDONE. [Suspect]
     Active Substance: RISPERIDONE
     Indication: MENTAL DISORDER
     Dosage: 7.5 MG ALTOGETHER ONCE A DAY
     Route: 048
     Dates: start: 200606, end: 20170222

REACTIONS (5)
  - Inappropriate schedule of drug administration [Unknown]
  - Nipple pain [Recovering/Resolving]
  - Gynaecomastia [Recovering/Resolving]
  - Hallucination, auditory [Recovering/Resolving]
  - Incorrect dose administered [Unknown]

NARRATIVE: CASE EVENT DATE: 200606
